FAERS Safety Report 4293909-3 (Version None)
Quarter: 2004Q1

REPORT INFORMATION
  Report Type: 
  Country: None (occurrence: None)
  Receive Date: 20040211
  Receipt Date: 20040211
  Transmission Date: 20041129
  Serious: Yes (Death, Hospitalization)
  Sender: FDA-Public Use
  Company Number: None

PATIENT
  Age: 74 Year
  Sex: Male
  Weight: 74.4 kg

DRUGS (26)
  1. WARFARIN SODIUM [Suspect]
     Indication: ATRIAL FIBRILLATION
     Dosage: 4 MG PO QD SEVERAL YEARS
     Route: 048
  2. INDOMETHACIN [Suspect]
     Indication: GOUT
     Dosage: 25 MG PO TID X 3-4 DOSES ONLY
     Route: 048
  3. AMBIEN [Concomitant]
  4. FLOVENT [Concomitant]
  5. NITROGLYCERIN SL [Concomitant]
  6. ALBUTEROL [Concomitant]
  7. PERCOCET [Concomitant]
  8. METHOTREXATE [Concomitant]
  9. COLCHICINE [Concomitant]
  10. SEPTRA [Concomitant]
  11. GLUCOTROL XL [Concomitant]
  12. METHYLPREDNISOLONE [Concomitant]
  13. INDOMETHACIN [Concomitant]
  14. ZEBETA [Concomitant]
  15. LASIX [Concomitant]
  16. ZESTRIL [Concomitant]
  17. IMDUR [Concomitant]
  18. ACCOLATE [Concomitant]
  19. DOCUSATE SODIUM [Concomitant]
  20. PRILOSEC [Concomitant]
  21. SIMETHICONE [Concomitant]
  22. DIGOXIN [Concomitant]
  23. ALPRAZOLAM [Concomitant]
  24. COUMADIN [Concomitant]
  25. ZYRTEC [Concomitant]
  26. SEREVENT [Concomitant]

REACTIONS (5)
  - COAGULOPATHY [None]
  - DYSPNOEA [None]
  - FATIGUE [None]
  - INTERNATIONAL NORMALISED RATIO INCREASED [None]
  - MALNUTRITION [None]
